FAERS Safety Report 13243594 (Version 2)
Quarter: 2017Q1

REPORT INFORMATION
  Report Type: Report from Study
  Country: US (occurrence: US)
  Receive Date: 20170216
  Receipt Date: 20170303
  Transmission Date: 20170428
  Serious: Yes (Hospitalization)
  Sender: FDA-Public Use
  Company Number: US-ACTELION-A-US2015-119150

PATIENT
  Age: 62 Year
  Sex: Female
  Weight: 58.96 kg

DRUGS (2)
  1. OPSUMIT [Suspect]
     Active Substance: MACITENTAN
     Indication: PULMONARY ARTERIAL HYPERTENSION
     Dosage: 10 MG, QD
     Route: 048
     Dates: start: 20150501
  2. VELETRI [Suspect]
     Active Substance: EPOPROSTENOL
     Indication: PULMONARY ARTERIAL HYPERTENSION
     Dosage: 15 NG/KG, PER MIN
     Route: 042

REACTIONS (13)
  - Nasopharyngitis [Unknown]
  - Decreased appetite [Unknown]
  - Influenza [Unknown]
  - Pneumonia [Unknown]
  - Headache [Unknown]
  - Diarrhoea [Unknown]
  - Flushing [Unknown]
  - Infection [Unknown]
  - Chest pain [Unknown]
  - Oedema peripheral [Recovered/Resolved]
  - Pulmonary congestion [Unknown]
  - Fatigue [Unknown]
  - Cough [Unknown]

NARRATIVE: CASE EVENT DATE: 20150507
